FAERS Safety Report 12357479 (Version 3)
Quarter: 2016Q3

REPORT INFORMATION
  Report Type: Report from Study
  Country: US (occurrence: US)
  Receive Date: 20160511
  Receipt Date: 20160727
  Transmission Date: 20161109
  Serious: Yes (Hospitalization)
  Sender: FDA-Public Use
  Company Number: US-JNJFOC-20160505687

PATIENT
  Age: 29 Year
  Sex: Male

DRUGS (3)
  1. VICKS DAYQUIL [Suspect]
     Active Substance: DEXTROMETHORPHAN HYDROBROMIDE\GUAIFENESIN
     Indication: RESPIRATORY SYMPTOM
     Dosage: INTERMITTENTLY OVER SAME TIME PERIOD
     Route: 065
  2. ACETAMINOPHEN. [Suspect]
     Active Substance: ACETAMINOPHEN
     Route: 065
  3. ACETAMINOPHEN. [Suspect]
     Active Substance: ACETAMINOPHEN
     Indication: MYALGIA
     Dosage: QUARTERLY 4 HOURS X 1 WEEK
     Route: 065
     Dates: start: 20160412, end: 201604

REACTIONS (2)
  - Overdose [Recovered/Resolved]
  - Transaminases increased [Recovered/Resolved]

NARRATIVE: CASE EVENT DATE: 20160412
